FAERS Safety Report 13853151 (Version 1)
Quarter: 2017Q3

REPORT INFORMATION
  Report Type: Spontaneous
  Country: US (occurrence: US)
  Receive Date: 20170809
  Receipt Date: 20170809
  Transmission Date: 20171127
  Serious: Yes (Death)
  Sender: FDA-Public Use
  Company Number: None

PATIENT
  Age: 63 Year
  Sex: Female

DRUGS (10)
  1. DOXORUBICAN [Concomitant]
  2. NEULASTA [Concomitant]
     Active Substance: PEGFILGRASTIM
  3. RITUXAN [Suspect]
     Active Substance: RITUXIMAB
     Indication: NON-HODGKIN^S LYMPHOMA
     Dosage: ?          OTHER FREQUENCY:INFUSE;?
     Route: 017
  4. GRANISETRON [Concomitant]
     Active Substance: GRANISETRON
  5. CYCLOPHOSPHAMIDE. [Concomitant]
     Active Substance: CYCLOPHOSPHAMIDE
  6. VITAMIN D3 [Concomitant]
     Active Substance: CHOLECALCIFEROL
  7. RITUXAN [Suspect]
     Active Substance: RITUXIMAB
     Indication: AGRANULOCYTOSIS
     Dosage: ?          OTHER FREQUENCY:INFUSE;?
     Route: 017
  8. VITAMIN B12 [Concomitant]
     Active Substance: CYANOCOBALAMIN
  9. VINCRISTINE [Concomitant]
     Active Substance: VINCRISTINE
  10. DIPHENHYDRAMINE. [Concomitant]
     Active Substance: DIPHENHYDRAMINE

REACTIONS (1)
  - Death [None]
